FAERS Safety Report 19589508 (Version 1)
Quarter: 2021Q3

REPORT INFORMATION
  Report Type: Report from Study
  Country: US (occurrence: US)
  Receive Date: 20210721
  Receipt Date: 20210721
  Transmission Date: 20211014
  Serious: Yes (Other)
  Sender: FDA-Public Use
  Company Number: US-PFIZER INC-2021864639

PATIENT
  Age: 43 Year
  Sex: Female
  Weight: 71.7 kg

DRUGS (5)
  1. TREPROSTINIL SODIUM [Suspect]
     Active Substance: TREPROSTINIL SODIUM
     Dosage: 0.022 UG/KG
     Dates: start: 20210625
  2. TREPROSTINIL SODIUM [Suspect]
     Active Substance: TREPROSTINIL SODIUM
     Dosage: 0.014 UG/KG, CONTINUING
     Route: 041
     Dates: start: 202106
  3. TREPROSTINIL SODIUM [Suspect]
     Active Substance: TREPROSTINIL SODIUM
     Indication: PULMONARY ARTERIAL HYPERTENSION
     Dosage: 1.0 MG/ML, CONTINUING
     Route: 041
     Dates: start: 20210602, end: 202106
  4. TREPROSTINIL SODIUM [Suspect]
     Active Substance: TREPROSTINIL SODIUM
     Dosage: 0.018 UG/KG, CONTINUING
     Route: 041
     Dates: start: 202106
  5. REVATIO [Suspect]
     Active Substance: SILDENAFIL CITRATE
     Indication: PRODUCT USED FOR UNKNOWN INDICATION
     Dosage: UNK

REACTIONS (12)
  - Pain in jaw [Unknown]
  - Chloropsia [Recovered/Resolved]
  - Chest pain [Recovered/Resolved]
  - Pain in extremity [Unknown]
  - Vomiting [Recovered/Resolved]
  - Headache [Unknown]
  - Dysgeusia [Unknown]
  - Intentional product misuse [Unknown]
  - Neck pain [Unknown]
  - Dysphagia [Recovered/Resolved]
  - Oropharyngeal pain [Unknown]
  - Dizziness postural [Unknown]

NARRATIVE: CASE EVENT DATE: 202106
